FAERS Safety Report 12323502 (Version 3)
Quarter: 2016Q4

REPORT INFORMATION
  Report Type: Report from Study
  Country: BR (occurrence: BR)
  Receive Date: 20160502
  Receipt Date: 20161129
  Transmission Date: 20170207
  Serious: Yes (Life-Threatening, Hospitalization, Other)
  Sender: FDA-Public Use
  Company Number: PHHY2015BR165001

PATIENT
  Age: 12 Year
  Sex: Female
  Weight: 51 kg

DRUGS (3)
  1. EXJADE [Suspect]
     Active Substance: DEFERASIROX
     Dosage: 1750 MG, UNK
     Route: 065
  2. HYDREA [Concomitant]
     Active Substance: HYDROXYUREA
     Indication: IRON OVERLOAD
     Dosage: 1 DF, QD
     Route: 048
  3. EXJADE [Suspect]
     Active Substance: DEFERASIROX
     Indication: SICKLE CELL ANAEMIA
     Dosage: 1500 MG (30 MG/KG), QD
     Route: 048
     Dates: start: 2012

REACTIONS (23)
  - Ischaemic stroke [Recovered/Resolved]
  - Vasculitis [Unknown]
  - Labyrinthitis [Unknown]
  - Hemiplegia [Recovered/Resolved]
  - Fatigue [Recovering/Resolving]
  - Sickle cell anaemia with crisis [Recovering/Resolving]
  - Weight increased [Recovering/Resolving]
  - Haemoglobin decreased [Recovering/Resolving]
  - Asthenia [Recovering/Resolving]
  - Platelet production decreased [Unknown]
  - Hepatic failure [Unknown]
  - Hypokinesia [Recovered/Resolved]
  - Abasia [Recovered/Resolved]
  - Serum ferritin increased [Recovering/Resolving]
  - Vein disorder [Unknown]
  - Headache [Unknown]
  - Pain [Recovering/Resolving]
  - Apparent death [Unknown]
  - Jaundice [Unknown]
  - Wrong technique in product usage process [Unknown]
  - Leishmaniasis [Unknown]
  - Haemorrhage [Unknown]
  - Ocular icterus [Recovered/Resolved]

NARRATIVE: CASE EVENT DATE: 201506
